FAERS Safety Report 26126717 (Version 1)
Quarter: 2025Q4

REPORT INFORMATION
  Report Type: Spontaneous
  Country: US (occurrence: US)
  Receive Date: 20251205
  Receipt Date: 20251205
  Transmission Date: 20260118
  Serious: No
  Sender: TEIKOKU
  Company Number: US-TPU-TPU-2025-00603

PATIENT
  Sex: Female

DRUGS (1)
  1. LIDOCAINE PATCH [Suspect]
     Active Substance: LIDOCAINE
     Indication: Intervertebral disc degeneration

REACTIONS (1)
  - Therapeutic response unexpected [None]
